FAERS Safety Report 17371193 (Version 1)
Quarter: 2020Q1

REPORT INFORMATION
  Report Type: Spontaneous
  Country: US (occurrence: US)
  Receive Date: 20200205
  Receipt Date: 20200205
  Transmission Date: 20200409
  Serious: Yes (Hospitalization)
  Sender: FDA-Public Use
  Company Number: US-SHIRE-US202003294

PATIENT
  Sex: Female

DRUGS (1)
  1. AGRYLIN [Suspect]
     Active Substance: ANAGRELIDE HYDROCHLORIDE
     Indication: LEUKAEMIA
     Route: 065

REACTIONS (4)
  - Product dose omission [Unknown]
  - Intentional product use issue [Unknown]
  - Hypersensitivity [Unknown]
  - Hospitalisation [Unknown]
